FAERS Safety Report 9406357 (Version 2)
Quarter: 2013Q3

REPORT INFORMATION
  Report Type: Report from Study
  Country: US (occurrence: US)
  Receive Date: 20130718
  Receipt Date: 20130723
  Transmission Date: 20140515
  Serious: Yes (Death, Hospitalization)
  Sender: FDA-Public Use
  Company Number: US-ROCHE-1250041

PATIENT
  Age: 74 Year
  Sex: Male

DRUGS (1)
  1. XELODA [Suspect]
     Indication: COLORECTAL CANCER METASTATIC
     Route: 048
     Dates: start: 20121215, end: 20130211

REACTIONS (2)
  - Colorectal cancer metastatic [Fatal]
  - Diarrhoea [Unknown]
